FAERS Safety Report 24959271 (Version 1)
Quarter: 2025Q1

REPORT INFORMATION
  Report Type: Spontaneous
  Country: US (occurrence: US)
  Receive Date: 20250212
  Receipt Date: 20250212
  Transmission Date: 20250409
  Serious: Yes (Hospitalization)
  Sender: STRIDES
  Company Number: US-STRIDES ARCOLAB LIMITED-2025SP002026

PATIENT
  Age: 37 Year
  Sex: Male

DRUGS (18)
  1. PHENOBARBITAL [Suspect]
     Active Substance: PHENOBARBITAL
     Indication: Drug use disorder
     Route: 065
  2. PHENOBARBITAL [Suspect]
     Active Substance: PHENOBARBITAL
     Route: 065
  3. PHENOBARBITAL [Suspect]
     Active Substance: PHENOBARBITAL
     Route: 065
  4. PHENOBARBITAL [Suspect]
     Active Substance: PHENOBARBITAL
     Route: 065
  5. METHADONE [Suspect]
     Active Substance: METHADONE HYDROCHLORIDE
     Indication: Drug use disorder
     Route: 065
  6. METHADONE [Suspect]
     Active Substance: METHADONE HYDROCHLORIDE
     Route: 065
  7. METHADONE [Suspect]
     Active Substance: METHADONE HYDROCHLORIDE
     Route: 065
  8. ALPRAZOLAM [Concomitant]
     Active Substance: ALPRAZOLAM
     Indication: Drug use disorder
     Route: 065
  9. BUPRENORPHINE [Concomitant]
     Active Substance: BUPRENORPHINE
     Indication: Drug use disorder
     Route: 042
  10. BUPRENORPHINE [Concomitant]
     Active Substance: BUPRENORPHINE
     Route: 042
  11. BUPRENORPHINE [Concomitant]
     Active Substance: BUPRENORPHINE
     Route: 042
  12. BUPRENORPHINE [Concomitant]
     Active Substance: BUPRENORPHINE
     Route: 042
  13. BUPRENORPHINE [Concomitant]
     Active Substance: BUPRENORPHINE
     Route: 042
  14. BUPRENORPHINE [Concomitant]
     Active Substance: BUPRENORPHINE
     Route: 042
  15. BUPRENORPHINE [Concomitant]
     Active Substance: BUPRENORPHINE
     Route: 042
  16. FLUOXETINE [Concomitant]
     Active Substance: FLUOXETINE HYDROCHLORIDE
     Indication: Post-traumatic stress disorder
     Route: 065
  17. MIRTAZAPINE [Concomitant]
     Active Substance: MIRTAZAPINE
     Indication: Insomnia
     Route: 065
  18. GABAPENTIN [Concomitant]
     Active Substance: GABAPENTIN
     Indication: Anxiety
     Route: 065

REACTIONS (9)
  - Night sweats [Unknown]
  - Fatigue [Unknown]
  - Abdominal pain upper [Unknown]
  - Drug withdrawal syndrome [Unknown]
  - Restlessness [Unknown]
  - Anticipatory anxiety [Unknown]
  - Insomnia [Unknown]
  - Nausea [Unknown]
  - Off label use [Unknown]
